FAERS Safety Report 11253805 (Version 1)
Quarter: 2015Q3

REPORT INFORMATION
  Report Type: Spontaneous
  Country: US (occurrence: US)
  Receive Date: 20150709
  Receipt Date: 20150709
  Transmission Date: 20151125
  Serious: Yes (Hospitalization, Other)
  Sender: FDA-Public Use
  Company Number: US-SUN PHARMACEUTICAL INDUSTRIES LTD-2015US-099955

PATIENT
  Age: 23 Year
  Sex: Female

DRUGS (2)
  1. LIDOCAINE / EPINEPHRINE [Suspect]
     Active Substance: EPINEPHRINE\LIDOCAINE
     Indication: EPIDURAL ANAESTHESIA
     Route: 008
  2. MORPHINE [Suspect]
     Active Substance: MORPHINE
     Indication: EPIDURAL ANAESTHESIA
     Dosage: UNK
     Route: 065

REACTIONS (6)
  - Coma [Recovering/Resolving]
  - Vomiting [Unknown]
  - Toxicity to various agents [Unknown]
  - Reflexes abnormal [Recovered/Resolved]
  - Paraparesis [Unknown]
  - Apnoea [Unknown]
